FAERS Safety Report 5615720-0 (Version None)
Quarter: 2008Q1

REPORT INFORMATION
  Report Type: 
  Country: None (occurrence: None)
  Receive Date: 20080206
  Receipt Date: 20080204
  Transmission Date: 20080703
  Serious: Yes (Death)
  Sender: FDA-Public Use
  Company Number: US-ASTRAZENECA-2008UW02373

PATIENT
  Age: 32 Year
  Sex: Male
  Weight: 81.6 kg

DRUGS (4)
  1. SEROQUEL [Suspect]
     Indication: BIPOLAR I DISORDER
     Route: 048
     Dates: start: 20070401
  2. THYROID TAB [Concomitant]
  3. ANTIHYPERTENSIVES [Concomitant]
  4. NAPROXEN [Concomitant]

REACTIONS (1)
  - DEATH [None]
